FAERS Safety Report 7018410-5 (Version None)
Quarter: 2010Q3

REPORT INFORMATION
  Report Type: 
  Country: None (occurrence: None)
  Receive Date: 20100928
  Receipt Date: 20100922
  Transmission Date: 20110219
  Serious: Yes (Hospitalization)
  Sender: FDA-Public Use
  Company Number: PHHO2010US13997

PATIENT
  Sex: Female
  Weight: 48.4 kg

DRUGS (7)
  1. STI571/CGP57148B T35717+TAB [Suspect]
     Indication: METASTATIC MALIGNANT MELANOMA
     Dosage: 400MG DAILY
     Route: 048
     Dates: start: 20100831, end: 20100907
  2. STI571/CGP57148B T35717+TAB [Suspect]
     Dosage: UNK
     Dates: start: 20100909
  3. ASPIRIN [Concomitant]
  4. COMPAZINE [Concomitant]
  5. LOVASTATIN [Concomitant]
  6. MULTI-VITAMIN [Concomitant]
  7. MILK OF MAGNESIA TAB [Concomitant]

REACTIONS (2)
  - ABDOMINAL PAIN [None]
  - NEOPLASM MALIGNANT [None]
